FAERS Safety Report 26089292 (Version 4)
Quarter: 2025Q4

REPORT INFORMATION
  Report Type: Spontaneous
  Country: US (occurrence: US)
  Receive Date: 20251125
  Receipt Date: 20251223
  Transmission Date: 20260118
  Serious: Yes (Life-Threatening, Other)
  Sender: SANOFI AVENTIS
  Company Number: US-SANOFI-02730309

PATIENT
  Age: 69 Year
  Sex: Female
  Weight: 64.7 kg

DRUGS (8)
  1. LANTUS [Suspect]
     Active Substance: INSULIN GLARGINE
     Indication: Diabetes mellitus
     Dosage: 23 IU, QD
     Route: 058
     Dates: start: 20121215, end: 20250827
  2. MOUNJARO [Concomitant]
     Active Substance: TIRZEPATIDE
     Dosage: UNK, QW
     Route: 058
  3. ASPIRIN [Concomitant]
     Active Substance: ASPIRIN
     Dosage: 1 DF, QD
  4. LIPITOR [Concomitant]
     Active Substance: ATORVASTATIN CALCIUM
     Dosage: 1 DF, QD
     Route: 048
  5. VITAMIN D3 [Concomitant]
     Active Substance: CHOLECALCIFEROL
     Dosage: 2000 IU, QD
     Route: 048
  6. JARDIANCE [Concomitant]
     Active Substance: EMPAGLIFLOZIN
     Dosage: 25 MG, QD (MORNING)
     Route: 048
  7. LIDODERM [Concomitant]
     Active Substance: LIDOCAINE
     Dosage: UNK UNK, PRN
  8. ALDACTONE [Concomitant]
     Active Substance: SPIRONOLACTONE
     Indication: Hypertension
     Dosage: 25 MG, BID (MORNING AND EVENING)
     Route: 048

REACTIONS (17)
  - Blood creatinine increased [Recovered/Resolved]
  - Glomerular filtration rate decreased [Recovered/Resolved]
  - Proteinuria [Recovered/Resolved]
  - Hyperplasia adrenal [Unknown]
  - Hyperaldosteronism [Unknown]
  - White blood cell count abnormal [Unknown]
  - Renin decreased [Unknown]
  - Urine albumin/creatinine ratio increased [Recovered/Resolved]
  - Blood alkaline phosphatase increased [Unknown]
  - Carbon dioxide decreased [Unknown]
  - Blood urea increased [Recovered/Resolved]
  - Low density lipoprotein [Unknown]
  - Haemoglobin increased [Unknown]
  - Weight increased [Recovering/Resolving]
  - Blood glucose increased [Unknown]
  - Glycosylated haemoglobin increased [Unknown]
  - Hypoglycaemia [Unknown]

NARRATIVE: CASE EVENT DATE: 20190101
